FAERS Safety Report 5829602-2 (Version None)
Quarter: 2008Q3

REPORT INFORMATION
  Report Type: 
  Country: None (occurrence: None)
  Receive Date: 20080731
  Receipt Date: 20080721
  Transmission Date: 20090109
  Serious: Yes (Disabling)
  Sender: FDA-Public Use
  Company Number: GB-PFIZER INC-2008061049

PATIENT
  Age: 50 Year
  Sex: Male

DRUGS (5)
  1. ATORVASTATIN [Suspect]
     Route: 048
     Dates: start: 20021118, end: 20040101
  2. CERIVASTATIN [Suspect]
     Route: 048
     Dates: start: 20000503, end: 20000828
  3. CRESTOR [Suspect]
     Route: 048
     Dates: start: 20040105, end: 20040514
  4. GLICLAZIDE [Concomitant]
     Route: 048
     Dates: start: 19990801, end: 20040413
  5. SULFASALAZINE [Concomitant]
     Route: 048

REACTIONS (25)
  - ARTHRALGIA [None]
  - BALANCE DISORDER [None]
  - CARPAL TUNNEL SYNDROME [None]
  - CONJUNCTIVITIS ALLERGIC [None]
  - DIABETES MELLITUS [None]
  - DYSGEUSIA [None]
  - DYSKINESIA [None]
  - ECZEMA [None]
  - FEELING COLD [None]
  - HAEMORRHAGE [None]
  - HEPATOCELLULAR INJURY [None]
  - ILL-DEFINED DISORDER [None]
  - MUSCLE ATROPHY [None]
  - MYALGIA [None]
  - NASOPHARYNGITIS [None]
  - OCULAR HYPERAEMIA [None]
  - PSORIASIS [None]
  - PSORIATIC ARTHROPATHY [None]
  - PYREXIA [None]
  - RHINORRHOEA [None]
  - SLEEP DISORDER [None]
  - SPEECH DISORDER [None]
  - TREMOR [None]
  - WEIGHT DECREASED [None]
  - WHEEZING [None]
